FAERS Safety Report 13230681 (Version 1)
Quarter: 2017Q1

REPORT INFORMATION
  Report Type: Spontaneous
  Country: AR (occurrence: AR)
  Receive Date: 20170214
  Receipt Date: 20170214
  Transmission Date: 20170428
  Serious: Yes (Other)
  Sender: FDA-Public Use
  Company Number: AR-SA-2017SA020327

PATIENT
  Age: 41 Year
  Sex: Male

DRUGS (1)
  1. FABRAZYME [Suspect]
     Active Substance: AGALSIDASE BETA
     Indication: FABRY^S DISEASE
     Route: 041
     Dates: start: 20130205

REACTIONS (3)
  - Hyperparathyroidism [Unknown]
  - Renal impairment [Unknown]
  - Pathological fracture [Unknown]

NARRATIVE: CASE EVENT DATE: 201701
